FAERS Safety Report 10655002 (Version 5)
Quarter: 2015Q1

REPORT INFORMATION
  Report Type: Spontaneous
  Country: JP (occurrence: JP)
  Receive Date: 20141216
  Receipt Date: 20150302
  Transmission Date: 20150720
  Serious: Yes (Hospitalization, Other)
  Sender: FDA-Public Use
  Company Number: JP-PFIZER INC-2014343871

PATIENT
  Age: 17 Year
  Sex: Male
  Weight: 52 kg

DRUGS (12)
  1. GENOTROPIN GOQUICK [Suspect]
     Active Substance: SOMATROPIN
     Indication: GROWTH HORMONE DEFICIENCY
     Dosage: 1.12 MG, 1X/DAY
     Route: 058
     Dates: start: 20130218, end: 20130424
  2. GENOTROPIN GOQUICK [Suspect]
     Active Substance: SOMATROPIN
     Indication: BODY HEIGHT BELOW NORMAL
     Dosage: 1.1 MG, 1X/DAY
     Route: 058
     Dates: start: 20130121, end: 20130217
  3. GENOTROPIN GOQUICK [Suspect]
     Active Substance: SOMATROPIN
     Dosage: 1.25 MG, 1X/DAY
     Route: 058
     Dates: start: 20130425, end: 20130626
  4. GENOTROPIN GOQUICK [Suspect]
     Active Substance: SOMATROPIN
     Dosage: 1.4 MG, 1X/DAY
     Route: 058
     Dates: start: 20130808, end: 20130911
  5. GENOTROPIN GOQUICK [Suspect]
     Active Substance: SOMATROPIN
     Dosage: 1.5 MG, 1X/DAY
     Route: 058
     Dates: start: 20140123, end: 20140325
  6. GENOTROPIN GOQUICK [Suspect]
     Active Substance: SOMATROPIN
     Dosage: 1.35 MG, 1X/DAY
     Route: 058
     Dates: start: 20130627, end: 20130807
  7. GENOTROPIN GOQUICK [Suspect]
     Active Substance: SOMATROPIN
     Dosage: 1.56 MG, 1X/DAY
     Route: 058
     Dates: start: 20140626, end: 20140813
  8. GENOTROPIN GOQUICK [Suspect]
     Active Substance: SOMATROPIN
     Dosage: 1.46 MG, 1X/DAY
     Route: 058
     Dates: start: 20131212, end: 20140122
  9. GENOTROPIN GOQUICK [Suspect]
     Active Substance: SOMATROPIN
     Dosage: 1.46 MG, 1X/DAY
     Route: 058
     Dates: start: 20140326, end: 20140423
  10. GENOTROPIN GOQUICK [Suspect]
     Active Substance: SOMATROPIN
     Dosage: 1.54 MG, 1X/DAY
     Route: 058
     Dates: start: 20140424, end: 20140625
  11. GENOTROPIN GOQUICK [Suspect]
     Active Substance: SOMATROPIN
     Dosage: 1.59 MG, 1X/DAY
     Route: 058
     Dates: start: 20140814, end: 20141210
  12. GENOTROPIN GOQUICK [Suspect]
     Active Substance: SOMATROPIN
     Dosage: 1.44 MG, 1X/DAY
     Route: 058
     Dates: start: 20130912, end: 20131211

REACTIONS (1)
  - Epiphysiolysis [Unknown]

NARRATIVE: CASE EVENT DATE: 20141101
